FAERS Safety Report 5317616-0 (Version None)
Quarter: 2007Q2

REPORT INFORMATION
  Report Type: 
  Country: None (occurrence: None)
  Receive Date: 20070507
  Receipt Date: 20070426
  Transmission Date: 20071010
  Serious: Yes (Hospitalization, Other)
  Sender: FDA-Public Use
  Company Number: PHMT2007CA00822

PATIENT
  Age: 83 Year
  Sex: Male

DRUGS (7)
  1. MIACALCIN [Suspect]
     Indication: OSTEOPOROSIS
     Dosage: UNK, UNK
     Route: 045
     Dates: start: 20070304
  2. CALCIUM CHLORIDE [Concomitant]
     Dosage: 625MG TID
  3. OMEPRAZOLE [Concomitant]
     Dosage: 40MG QD
  4. VENTOLIN [Concomitant]
  5. BRICANYL [Concomitant]
  6. PREDNISONE TAB [Concomitant]
     Dosage: 12.5MG QD
  7. VITAMIN D [Concomitant]
     Dosage: 800IU QD

REACTIONS (4)
  - APHAGIA [None]
  - HEMIPLEGIA [None]
  - TRANSIENT ISCHAEMIC ATTACK [None]
  - VISUAL DISTURBANCE [None]
